FAERS Safety Report 8709432 (Version 2)
Quarter: 2012Q4

REPORT INFORMATION
  Report Type: 
  Country: DE (occurrence: DE)
  Receive Date: 20120806
  Receipt Date: 20120906
  Transmission Date: 20130627
  Serious: Yes (Hospitalization)
  Sender: FDA-Public Use
  Company Number: DE-BRISTOL-MYERS SQUIBB COMPANY-16806358

PATIENT
  Sex: Female

DRUGS (1)
  1. REYATAZ CAPS [Suspect]
     Indication: HIV INFECTION

REACTIONS (1)
  - Dysphagia [Unknown]
